FAERS Safety Report 7531647-1 (Version None)
Quarter: 2011Q2

REPORT INFORMATION
  Report Type: 
  Country: None (occurrence: None)
  Receive Date: 20110608
  Receipt Date: 20110526
  Transmission Date: 20111010
  Serious: Yes (Hospitalization, Other)
  Sender: FDA-Public Use
  Company Number: US-BAYER-2011-045987

PATIENT
  Sex: Female

DRUGS (1)
  1. MIRENA [Suspect]
     Dosage: 20 MCG/24HR, ONCE
     Dates: start: 20110510, end: 20110501

REACTIONS (2)
  - UTERINE PERFORATION [None]
  - ABDOMINAL PAIN LOWER [None]
